FAERS Safety Report 8435903-4 (Version None)
Quarter: 2012Q2

REPORT INFORMATION
  Report Type: 
  Country: None (occurrence: None)
  Receive Date: 20120614
  Receipt Date: 20120604
  Transmission Date: 20120825
  Serious: Yes (Hospitalization)
  Sender: FDA-Public Use
  Company Number: JP-ROCHE-1053531

PATIENT
  Sex: Male
  Weight: 71 kg

DRUGS (7)
  1. ACETAMINOPHEN [Suspect]
     Indication: PYREXIA
     Dosage: TAKEN AS NEEDED.
     Route: 048
     Dates: start: 20120208
  2. TAMIFLU [Suspect]
     Dosage: PATIENT SELF-DISCONTINUED
     Route: 048
     Dates: start: 20120209, end: 20120209
  3. NYROZIN [Concomitant]
     Dosage: DOSAGE IS UNCERTAIN.
     Route: 042
  4. ALLOPURINOL [Concomitant]
     Dosage: DOSAGE IS UNCERTAIN.
     Route: 048
  5. TAMIFLU [Suspect]
     Indication: INFLUENZA
     Route: 048
     Dates: start: 20120208, end: 20120208
  6. GASMOTIN [Concomitant]
     Dosage: DOSAGE IS UNCERTAIN.
     Route: 048
  7. CEFTRIAXONE SODIUM [Concomitant]
     Dosage: DOSAGE IS UNCERTAIN.
     Route: 042

REACTIONS (7)
  - HEPATIC ENZYME INCREASED [None]
  - URETERAL NECROSIS [None]
  - RHABDOMYOLYSIS [None]
  - GALLBLADDER DISORDER [None]
  - HYPERTENSION [None]
  - RENAL FAILURE ACUTE [None]
  - TREMOR [None]
